FAERS Safety Report 7424632-1 (Version None)
Quarter: 2011Q2

REPORT INFORMATION
  Report Type: 
  Country: None (occurrence: None)
  Receive Date: 20110419
  Receipt Date: 20110413
  Transmission Date: 20111010
  Serious: Yes (Death, Hospitalization)
  Sender: FDA-Public Use
  Company Number: MX-SANOFI-AVENTIS-2011SA022876

PATIENT
  Age: 91 Year
  Sex: Female

DRUGS (5)
  1. DIFENIDOL [Concomitant]
     Indication: VERTIGO
     Route: 048
     Dates: start: 20050101, end: 20101001
  2. LOSARTAN POTASSIUM [Concomitant]
     Dates: start: 20050101, end: 20101001
  3. INSULIN GLARGINE [Suspect]
     Indication: TYPE 2 DIABETES MELLITUS
     Dosage: 5IU TO 10 IU /  24 HOURS (DOSE DEPENDING ON THE GLUCOSE LEVELS)
     Route: 058
     Dates: end: 20101001
  4. ISOSORBIDE DINITRATE [Concomitant]
     Indication: ANGINA PECTORIS
     Route: 048
     Dates: start: 20050101, end: 20101001
  5. ISOSORBIDE DINITRATE [Concomitant]
     Route: 048
     Dates: start: 20050101, end: 20101001

REACTIONS (1)
  - HIP FRACTURE [None]
